FAERS Safety Report 20637352 (Version 4)
Quarter: 2022Q2

REPORT INFORMATION
  Report Type: Report from Study
  Country: IT (occurrence: IT)
  Receive Date: 20220325
  Receipt Date: 20220427
  Transmission Date: 20220721
  Serious: Yes (Hospitalization)
  Sender: FDA-Public Use
  Company Number: None

PATIENT
  Age: 18 Year
  Sex: Female

DRUGS (9)
  1. OLANZAPINE [Suspect]
     Active Substance: OLANZAPINE
     Indication: Product used for unknown indication
     Dosage: 35 MILLIGRAM, TOTAL
     Route: 048
     Dates: start: 20211218, end: 20211218
  2. OLANZAPINE [Suspect]
     Active Substance: OLANZAPINE
     Dosage: 35 MILLIGRAM, TOTAL
     Route: 065
     Dates: start: 20211218, end: 20211218
  3. ZOLOFT [Suspect]
     Active Substance: SERTRALINE HYDROCHLORIDE
     Indication: Product used for unknown indication
     Dosage: 6 DOSAGE FORM, TOTAL
     Route: 048
     Dates: start: 20211218, end: 20211218
  4. LITHIUM [Suspect]
     Active Substance: LITHIUM
     Indication: Product used for unknown indication
     Dosage: 830 MILLIGRAM, TOTAL
     Route: 048
     Dates: start: 20211218, end: 20211218
  5. TAVOR (LORAZEPAM) [Suspect]
     Active Substance: LORAZEPAM
     Indication: Product used for unknown indication
     Dosage: 20 MILLIGRAM, TOTAL
     Route: 048
     Dates: start: 20211218, end: 20211218
  6. TAVOR (LORAZEPAM) [Suspect]
     Active Substance: LORAZEPAM
     Dosage: 20 MILLIGRAM, TOTAL
     Route: 065
     Dates: start: 20211218, end: 20211218
  7. SERTRALINE [Concomitant]
     Active Substance: SERTRALINE HYDROCHLORIDE
     Indication: Product used for unknown indication
     Dosage: 150 MILLIGRAM
     Route: 065
  8. LITHIUM SULFATE [Concomitant]
     Active Substance: LITHIUM SULFATE
     Dosage: UNK
  9. OLANZAPINE [Concomitant]
     Active Substance: OLANZAPINE
     Dosage: UNK

REACTIONS (4)
  - Sopor [Not Recovered/Not Resolved]
  - Diarrhoea [Not Recovered/Not Resolved]
  - Vomiting [Not Recovered/Not Resolved]
  - Drug abuse [Not Recovered/Not Resolved]

NARRATIVE: CASE EVENT DATE: 20211218
